FAERS Safety Report 7537696-1 (Version None)
Quarter: 2011Q2

REPORT INFORMATION
  Report Type: 
  Country: None (occurrence: None)
  Receive Date: 20110609
  Receipt Date: 20070911
  Transmission Date: 20111010
  Serious: Yes (Hospitalization, Other)
  Sender: FDA-Public Use
  Company Number: PHFR2007IE02133

PATIENT
  Sex: Female
  Weight: 47 kg

DRUGS (8)
  1. DALMANE [Concomitant]
     Dosage: 15 MG/DAY
     Route: 048
  2. AKINETON [Concomitant]
     Dosage: 2 MG, UNK
     Route: 048
  3. CENTRUM [Concomitant]
     Dosage: 1 TABLET DAILY
     Route: 048
  4. LAMOTRIGINE [Concomitant]
     Dosage: 125 MG, BID
     Route: 048
  5. ARIPIPRAZOLE [Concomitant]
     Dosage: 10 MG, QD
     Route: 048
  6. VENLAFAXINE [Concomitant]
     Dosage: 225 MG, UNK
     Route: 048
  7. ALPRAZOLAM [Concomitant]
     Dosage: 0.25 MG, TID
     Route: 048
  8. CLOZAPINE [Suspect]
     Indication: SCHIZOPHRENIA
     Dosage: 450 MG, UNK
     Route: 048
     Dates: start: 20051123

REACTIONS (6)
  - BLOOD IMMUNOGLOBULIN G DECREASED [None]
  - IMMUNOGLOBULINS DECREASED [None]
  - BLOOD IMMUNOGLOBULIN A DECREASED [None]
  - WHITE BLOOD CELL COUNT INCREASED [None]
  - LOWER RESPIRATORY TRACT INFECTION [None]
  - NEUTROPHIL COUNT INCREASED [None]
